FAERS Safety Report 26168583 (Version 2)
Quarter: 2025Q4

REPORT INFORMATION
  Report Type: Report from Study
  Country: US (occurrence: US)
  Receive Date: 20251217
  Receipt Date: 20251230
  Transmission Date: 20260117
  Serious: Yes (Other)
  Sender: TAKEDA
  Company Number: US-TAKEDA-2021TUS049084

PATIENT
  Age: 43 Year
  Sex: Male

DRUGS (9)
  1. RECOMBINATE [Suspect]
     Active Substance: ANTIHEMOPHILIC FACTOR, HUMAN RECOMBINANT
     Indication: Haemorrhage
     Dosage: 1060 INTERNATIONAL UNIT
  2. RECOMBINATE [Suspect]
     Active Substance: ANTIHEMOPHILIC FACTOR, HUMAN RECOMBINANT
     Dosage: 6000 INTERNATIONAL UNIT
  3. RECOMBINATE [Suspect]
     Active Substance: ANTIHEMOPHILIC FACTOR, HUMAN RECOMBINANT
     Dosage: 2000 INTERNATIONAL UNIT, QD
  4. RECOMBINATE [Suspect]
     Active Substance: ANTIHEMOPHILIC FACTOR, HUMAN RECOMBINANT
     Dosage: 1000 INTERNATIONAL UNIT
  5. RECOMBINATE [Suspect]
     Active Substance: ANTIHEMOPHILIC FACTOR, HUMAN RECOMBINANT
     Dosage: 1030 INTERNATIONAL UNIT
  6. RECOMBINATE [Suspect]
     Active Substance: ANTIHEMOPHILIC FACTOR, HUMAN RECOMBINANT
     Dosage: 1000 INTERNATIONAL UNIT, BID
  7. RECOMBINATE [Suspect]
     Active Substance: ANTIHEMOPHILIC FACTOR, HUMAN RECOMBINANT
     Dosage: 1000 INTERNATIONAL UNIT
  8. RECOMBINATE [Suspect]
     Active Substance: ANTIHEMOPHILIC FACTOR, HUMAN RECOMBINANT
     Dosage: 1000 INTERNATIONAL UNIT, BID
  9. RECOMBINATE [Suspect]
     Active Substance: ANTIHEMOPHILIC FACTOR, HUMAN RECOMBINANT
     Dosage: 1000 INTERNATIONAL UNIT

REACTIONS (12)
  - Haemarthrosis [Recovered/Resolved]
  - Haemorrhage [Unknown]
  - Muscle haemorrhage [Unknown]
  - Chest injury [Unknown]
  - Spontaneous haemorrhage [Unknown]
  - Ligament sprain [Unknown]
  - Fall [Unknown]
  - Joint injury [Recovered/Resolved]
  - Head injury [Unknown]
  - Limb injury [Unknown]
  - Musculoskeletal chest pain [Unknown]
  - Walking aid user [Unknown]

NARRATIVE: CASE EVENT DATE: 20210729
